FAERS Safety Report 23227739 (Version 1)
Quarter: 2023Q4

REPORT INFORMATION
  Report Type: Report from Study
  Country: HU (occurrence: HU)
  Receive Date: 20231125
  Receipt Date: 20231125
  Transmission Date: 20240109
  Serious: Yes (Death, Hospitalization)
  Sender: FDA-Public Use
  Company Number: HU-ABBVIE-5510455

PATIENT
  Sex: Male

DRUGS (13)
  1. CARBIDOPA\LEVODOPA [Suspect]
     Active Substance: CARBIDOPA\LEVODOPA
     Indication: Parkinson^s disease
     Dosage: MORNING DOSE: 7.8 ML; CONTINUOUS DOSE: 2.4 ML/HOUR; EXTRA DOSE: 1.0 ML
     Route: 050
     Dates: start: 20230725
  2. CARBIDOPA\LEVODOPA [Suspect]
     Active Substance: CARBIDOPA\LEVODOPA
  3. FAMOTIDINE [Concomitant]
     Active Substance: FAMOTIDINE
     Indication: Prophylaxis
     Dosage: FORM STRENGTH 20 MILLIGRAM
     Dates: start: 202307
  4. SCIPPA [Concomitant]
     Indication: Affective disorder
     Dosage: FORM STRENGTH: 10 MILLIGRAM
  5. XULTOPHY 100/3.6 [Concomitant]
     Active Substance: INSULIN DEGLUDEC\LIRAGLUTIDE
     Indication: Diabetes mellitus
     Dosage: 100 UNIT/ML INSULIN DEGLUDEC + 3.6 MG/ML LIRAGLUTID IN 1 ML SOLUTION
  6. ENOXAPARIN SODIUM [Concomitant]
     Active Substance: ENOXAPARIN SODIUM
     Indication: Prophylaxis
     Dosage: 4000 NE (40 MG)/0.4 ML  /AMPOULE?FREQUENCY TEXT: 0.4 ML IN THE EVENING
     Dates: start: 20230729
  7. METHIMAZOLE [Concomitant]
     Active Substance: METHIMAZOLE
     Indication: Hyperthyroidism
     Dosage: FORM STRENGTH: 10 MILLIGRAM?FREQUENCY TEXT: HALF TABLET DAILY
  8. INDAPAMIDE\PERINDOPRIL ERBUMINE [Concomitant]
     Active Substance: INDAPAMIDE\PERINDOPRIL ERBUMINE
     Indication: Hypertension
     Dosage: 4 MG PERINDOPRIL, 1.25 MG INDAPAMID / TABLET?FREQUENCY TEXT: 1 TABLET IN THE EVENING
  9. DOXAZOSIN MESYLATE [Concomitant]
     Active Substance: DOXAZOSIN MESYLATE
     Indication: Hypertension
     Dosage: FORM STRENGTH: 4 MILLIGRAM
  10. QUETIAPINE FUMARATE [Concomitant]
     Active Substance: QUETIAPINE FUMARATE
     Indication: Confusional state
     Dosage: 100 MILLIGRAM?FORM STRENGTH: 25 MILLIGRAM?FREQUENCY TEXT: MORNING 1, NOON 1 EVENING 2 TABLETS
  11. STALEVO [Concomitant]
     Active Substance: CARBIDOPA\ENTACAPONE\LEVODOPA
     Indication: Parkinson^s disease
     Dosage: TIME INTERVAL: AS NECESSARY: 175 MG LEVODOPA, 43.75 MG CARBIDOPA; 200 MG ENTACAPONE /TABLET?FREQU...
  12. .ALPHA.-LIPOIC ACID [Concomitant]
     Active Substance: .ALPHA.-LIPOIC ACID
     Indication: Diabetic neuropathy
     Dosage: FORM STRENGTH: 600 MILLIGRAM
  13. METFORMIN HYDROCHLORIDE [Concomitant]
     Active Substance: METFORMIN HYDROCHLORIDE
     Indication: Diabetes mellitus
     Dosage: FORM STRENGTH 1000 MILLIGRAM

REACTIONS (5)
  - Death [Fatal]
  - Parkinson^s disease [Not Recovered/Not Resolved]
  - Pyrexia [Not Recovered/Not Resolved]
  - Decreased appetite [Not Recovered/Not Resolved]
  - C-reactive protein increased [Unknown]

NARRATIVE: CASE EVENT DATE: 20231101
